FAERS Safety Report 6543768-0 (Version None)
Quarter: 2010Q1

REPORT INFORMATION
  Report Type: 
  Country: None (occurrence: None)
  Receive Date: 20100120
  Receipt Date: 20090708
  Transmission Date: 20100710
  Serious: No
  Sender: FDA-Public Use
  Company Number: US-BRISTOL-MYERS SQUIBB COMPANY-14695639

PATIENT
  Age: 44 Year
  Sex: Female
  Weight: 98 kg

DRUGS (2)
  1. TRAZODONE HCL [Suspect]
     Indication: SLEEP DISORDER
     Dosage: ALSO TAKEN AS CONMED
     Dates: start: 20080801, end: 20081001
  2. XYREM [Suspect]
     Indication: SLEEP DISORDER
     Dosage: XYREM 500MG/ML,SOLUTION. 1 DOSAGE FORM: 1ST DOSE (4.5 G), 2ND DOSE (3 G)
     Route: 048
     Dates: start: 20080801

REACTIONS (3)
  - ANXIETY [None]
  - BLEPHAROSPASM [None]
  - HEADACHE [None]
